FAERS Safety Report 5397832-2 (Version None)
Quarter: 2007Q3

REPORT INFORMATION
  Report Type: 
  Country: None (occurrence: None)
  Receive Date: 20070724
  Receipt Date: 20070724
  Transmission Date: 20080115
  Serious: Yes (Hospitalization)
  Sender: FDA-Public Use
  Company Number: None

PATIENT
  Age: 10 Month
  Sex: Male
  Weight: 10 kg

DRUGS (1)
  1. CEFTRIAXONE [Suspect]
     Indication: BACTERAEMIA
     Dosage: 525MG ONCE IV  1 DOSE
     Route: 042
     Dates: start: 20070723, end: 20070723

REACTIONS (2)
  - CONVULSION [None]
  - RASH [None]
